FAERS Safety Report 16555380 (Version 5)
Quarter: 2020Q1

REPORT INFORMATION
  Report Type: Report from Study
  Country: US (occurrence: US)
  Receive Date: 20190710
  Receipt Date: 20200213
  Transmission Date: 20200409
  Serious: Yes (Death, Hospitalization)
  Sender: FDA-Public Use
  Company Number: US-ACTELION-A-NJ2017-162971

PATIENT
  Age: 66 Year
  Sex: Female
  Weight: 45.81 kg

DRUGS (6)
  1. VELETRI [Suspect]
     Active Substance: EPOPROSTENOL
     Indication: PULMONARY HYPERTENSION
     Dosage: 37 NG/KG, PER MIN
     Route: 042
  2. OPSUMIT [Suspect]
     Active Substance: MACITENTAN
     Indication: PULMONARY HYPERTENSION
     Dosage: 10 MG, QD
     Route: 048
  3. ADEMPAS [Concomitant]
     Active Substance: RIOCIGUAT
  4. VELETRI [Suspect]
     Active Substance: EPOPROSTENOL
     Dosage: 29 NG/KG, PER MIN
     Route: 042
  5. VELETRI [Suspect]
     Active Substance: EPOPROSTENOL
     Dosage: 9 NG/KG, PER MIN
     Route: 042
  6. VELETRI [Suspect]
     Active Substance: EPOPROSTENOL
     Dosage: 22 NG/KG, PER MIN
     Route: 042

REACTIONS (19)
  - Pain in jaw [Unknown]
  - Cough [Unknown]
  - Nasopharyngitis [Unknown]
  - Back pain [Unknown]
  - Weight decreased [Unknown]
  - Haemorrhage [Not Recovered/Not Resolved]
  - Device alarm issue [Recovered/Resolved]
  - Nausea [Unknown]
  - Incorrect dose administered [Unknown]
  - Hospitalisation [Unknown]
  - Myalgia [Unknown]
  - Diarrhoea [Unknown]
  - Dyspnoea [Unknown]
  - Asthenia [Unknown]
  - Hypotension [Unknown]
  - Dizziness [Unknown]
  - Scab [Not Recovered/Not Resolved]
  - Death [Fatal]
  - Chills [Unknown]

NARRATIVE: CASE EVENT DATE: 20200131
